FAERS Safety Report 7645717-0 (Version None)
Quarter: 2011Q3

REPORT INFORMATION
  Report Type: 
  Country: None (occurrence: None)
  Receive Date: 20110729
  Receipt Date: 20110722
  Transmission Date: 20111222
  Serious: Yes (Other)
  Sender: FDA-Public Use
  Company Number: US-AMGEN-USASP2011037778

PATIENT
  Age: 58 Year
  Sex: Male

DRUGS (3)
  1. CORTICOSTEROIDS [Concomitant]
  2. NPLATE [Suspect]
     Indication: IDIOPATHIC THROMBOCYTOPENIC PURPURA
     Dates: start: 20080722
  3. RITUXIMAB [Concomitant]

REACTIONS (4)
  - POIKILOCYTOSIS [None]
  - ANISOCYTOSIS [None]
  - WHITE BLOOD CELL COUNT INCREASED [None]
  - CHRONIC LYMPHOCYTIC LEUKAEMIA [None]
